FAERS Safety Report 8807780 (Version 1)
Quarter: 2012Q4

REPORT INFORMATION
  Report Type: Report from Study
  Country: FR (occurrence: FR)
  Receive Date: 20120925
  Receipt Date: 20120925
  Transmission Date: 20130627
  Serious: Yes (Hospitalization)
  Sender: FDA-Public Use
  Company Number: FR-ROCHE-1128759

PATIENT
  Age: 53 Year
  Sex: Female
  Weight: 66 kg

DRUGS (9)
  1. HERCEPTIN [Suspect]
     Indication: BREAST CANCER
     Dosage: loading dose, cycle 1
     Route: 042
     Dates: start: 20120709
  2. HERCEPTIN [Suspect]
     Dosage: maitanance dose, date of last drug taken prior to SAE:17/aug/2012
     Route: 042
  3. DOCETAXEL [Suspect]
     Indication: BREAST CANCER
     Dosage: date of last drug taken prior to SAE:17/aug/2012
     Route: 042
     Dates: start: 20120709
  4. IBUPROFENE [Concomitant]
     Route: 065
     Dates: start: 201205
  5. VERSATIS [Concomitant]
     Route: 065
     Dates: start: 2009
  6. DEBRIDAT [Concomitant]
     Route: 065
     Dates: start: 201208
  7. SOLUPRED (FRANCE) [Concomitant]
     Route: 065
     Dates: start: 20120708, end: 201208
  8. PLACEBO [Suspect]
     Indication: BREAST CANCER
     Dosage: loading dose
     Route: 042
     Dates: start: 20120709
  9. PLACEBO [Suspect]
     Dosage: maintainance dose, date of last dose prior to onset of AE:17/aug/2012
     Route: 042

REACTIONS (1)
  - Febrile bone marrow aplasia [Recovered/Resolved]
